FAERS Safety Report 8851298 (Version 1)
Quarter: 2012Q4

REPORT INFORMATION
  Report Type: 
  Country: US (occurrence: US)
  Receive Date: 20121020
  Receipt Date: 20121020
  Transmission Date: 20130627
  Serious: No
  Sender: FDA-Public Use
  Company Number: US-TEVA-363559USA

PATIENT
  Age: 51 Year
  Sex: Female
  Weight: 59.02 kg

DRUGS (3)
  1. PROAIR HFA [Suspect]
     Indication: RESPIRATORY TRACT INFECTION VIRAL
     Dosage: as needed
     Route: 055
     Dates: start: 201209
  2. NAPROXEN [Concomitant]
     Indication: PAIN
     Dosage: as needed
     Route: 048
  3. NAPROXEN [Concomitant]
     Indication: HEADACHE

REACTIONS (1)
  - Headache [Not Recovered/Not Resolved]
